FAERS Safety Report 8394640-5 (Version None)
Quarter: 2012Q1

REPORT INFORMATION
  Report Type: 
  Country: None (occurrence: None)
  Receive Date: 20120323
  Receipt Date: 20110503
  Transmission Date: 20120608
  Serious: Yes (Hospitalization)
  Sender: FDA-Public Use
  Company Number: 163-21880-11050561

PATIENT
  Age: 77 Year
  Sex: Female

DRUGS (2)
  1. REVLIMID [Suspect]
     Indication: MULTIPLE MYELOMA
     Dosage: 10 MG, DAYS 1 TO 21 OF CYCLE, PO
     Route: 048
     Dates: start: 20100528
  2. REVLIMID [Suspect]
     Indication: MULTIPLE MYELOMA
     Dosage: 10 MG , DAYS 1 TO 21 OF CYCLE; PO
     Route: 048
     Dates: start: 20080111, end: 20100111

REACTIONS (1)
  - PNEUMONIA [None]
